FAERS Safety Report 6981761-4 (Version None)
Quarter: 2010Q3

REPORT INFORMATION
  Report Type: 
  Country: None (occurrence: None)
  Receive Date: 20100914
  Receipt Date: 20091012
  Transmission Date: 20110219
  Serious: No
  Sender: FDA-Public Use
  Company Number: US-PFIZER INC-2009248352

PATIENT
  Sex: Male

DRUGS (4)
  1. LYRICA [Suspect]
     Indication: NEURALGIA
     Dosage: 300 MG, 2X/DAY
  2. ARTHROTEC [Suspect]
     Dosage: UNK
  3. VICODIN [Concomitant]
     Dosage: TWICE DAILY
  4. XANAX [Concomitant]
     Dosage: UNK

REACTIONS (7)
  - BURNING SENSATION [None]
  - GASTRIC DISORDER [None]
  - HYPOAESTHESIA [None]
  - MEMORY IMPAIRMENT [None]
  - MENTAL IMPAIRMENT [None]
  - RENAL DISORDER [None]
  - SPINAL DISORDER [None]
